FAERS Safety Report 24912920 (Version 1)
Quarter: 2025Q1

REPORT INFORMATION
  Report Type: Report from Study
  Country: CA (occurrence: CA)
  Receive Date: 20250201
  Receipt Date: 20250201
  Transmission Date: 20250409
  Serious: Yes (Other)
  Sender: ABBVIE
  Company Number: CA-ABBVIE-6101356

PATIENT
  Age: 62 Year
  Sex: Female

DRUGS (1)
  1. RINVOQ [Suspect]
     Active Substance: UPADACITINIB
     Indication: Ankylosing spondylitis
     Dosage: 30 MG
     Route: 048
     Dates: start: 20230322

REACTIONS (8)
  - Vascular rupture [Unknown]
  - Blister rupture [Recovering/Resolving]
  - Tongue blistering [Recovering/Resolving]
  - Contusion [Recovering/Resolving]
  - Oral mucosal blistering [Recovering/Resolving]
  - Pruritus [Unknown]
  - Aphthous ulcer [Unknown]
  - Skin haemorrhage [Unknown]
